FAERS Safety Report 12417747 (Version 4)
Quarter: 2016Q3

REPORT INFORMATION
  Report Type: Spontaneous
  Country: US (occurrence: US)
  Receive Date: 20160530
  Receipt Date: 20160715
  Transmission Date: 20161109
  Serious: Yes (Death, Life-Threatening, Hospitalization, Other)
  Sender: FDA-Public Use
  Company Number: US-009507513-1605USA013636

PATIENT
  Sex: Male
  Weight: 86.62 kg

DRUGS (5)
  1. ACTOS [Suspect]
     Active Substance: PIOGLITAZONE HYDROCHLORIDE
     Indication: TYPE 2 DIABETES MELLITUS
     Dosage: UNK
     Dates: start: 200905, end: 201203
  2. JANUVIA [Suspect]
     Active Substance: SITAGLIPTIN PHOSPHATE
     Indication: TYPE 2 DIABETES MELLITUS
     Dosage: UNK
     Dates: start: 200812, end: 201403
  3. ANDROGEL [Suspect]
     Active Substance: TESTOSTERONE
     Indication: TYPE 2 DIABETES MELLITUS
     Dosage: UNK
     Dates: start: 201002, end: 201506
  4. FLUOROURACIL (+) IRINOTECAN HYDROCHLORIDE (+) LEUCOVORIN CALCIUM (+) O [Suspect]
     Active Substance: FLUOROURACIL\IRINOTECAN\LEUCOVORIN\OXALIPLATIN
     Indication: CHEMOTHERAPY
     Dosage: TWO ROUNDS
     Dates: start: 2015
  5. VICTOZA [Suspect]
     Active Substance: LIRAGLUTIDE
     Indication: TYPE 2 DIABETES MELLITUS
     Dosage: UNK
     Dates: start: 201210, end: 201506

REACTIONS (5)
  - Therapy non-responder [Not Recovered/Not Resolved]
  - Pulmonary embolism [Fatal]
  - Pancreatic carcinoma [Fatal]
  - Deep vein thrombosis [Not Recovered/Not Resolved]
  - Pancreatitis [Fatal]

NARRATIVE: CASE EVENT DATE: 2015
